FAERS Safety Report 11360635 (Version 3)
Quarter: 2015Q3

REPORT INFORMATION
  Report Type: Spontaneous
  Country: US (occurrence: US)
  Receive Date: 20150810
  Receipt Date: 20150923
  Transmission Date: 20151125
  Serious: Yes (Other)
  Sender: FDA-Public Use
  Company Number: US-TEVA-584793ACC

PATIENT
  Age: 27 Year
  Sex: Female
  Weight: 57.66 kg

DRUGS (1)
  1. PARAGARD T 380A [Suspect]
     Active Substance: COPPER
     Indication: CONTRACEPTION
     Route: 015
     Dates: start: 20150428

REACTIONS (5)
  - Device dislocation [Recovered/Resolved]
  - Dyspareunia [Recovered/Resolved]
  - Abdominal pain lower [Not Recovered/Not Resolved]
  - Hernia [Unknown]
  - Pelvic pain [Recovered/Resolved]

NARRATIVE: CASE EVENT DATE: 20150428
